FAERS Safety Report 7917334 (Version 5)
Quarter: 2012Q4

REPORT INFORMATION
  Report Type: 
  Country: US (occurrence: US)
  Receive Date: 20110427
  Receipt Date: 20121105
  Transmission Date: 20130627
  Serious: Yes (Hospitalization, Other)
  Sender: FDA-Public Use
  Company Number: US-ASTRAZENECA-2010SE05616

PATIENT
  Sex: Female
  Weight: 72.1 kg

DRUGS (2)
  1. NEXIUM [Suspect]
     Indication: GASTROOESOPHAGEAL REFLUX DISEASE
     Route: 048
     Dates: start: 200910
  2. OTC MEDICATION [Suspect]

REACTIONS (15)
  - Cardiac failure congestive [Unknown]
  - Pneumonia [Unknown]
  - Gastrooesophageal reflux disease [Unknown]
  - Myocardial infarction [Unknown]
  - Adverse event [Unknown]
  - Bronchitis [Unknown]
  - Cough [Unknown]
  - Pain [Unknown]
  - Choking [Unknown]
  - Bronchial secretion retention [Unknown]
  - Dysphagia [Unknown]
  - Hypersensitivity [Unknown]
  - Nausea [Unknown]
  - Drug ineffective [Unknown]
  - Drug dose omission [Unknown]
